FAERS Safety Report 5342583-3 (Version None)
Quarter: 2007Q2

REPORT INFORMATION
  Report Type: 
  Country: None (occurrence: None)
  Receive Date: 20070601
  Receipt Date: 20070322
  Transmission Date: 20071010
  Serious: No
  Sender: FDA-Public Use
  Company Number: A0644282A

PATIENT
  Age: 9 Month

DRUGS (2)
  1. AUGMENTIN '125' [Suspect]
     Indication: EAR INFECTION
     Dosage: 200MG TWICE PER DAY
     Route: 048
  2. NO CONCURRENT MEDICATION [Concomitant]

REACTIONS (1)
  - MEDICATION ERROR [None]
